FAERS Safety Report 14893683 (Version 7)
Quarter: 2018Q3

REPORT INFORMATION
  Report Type: Report from Study
  Country: US (occurrence: US)
  Receive Date: 20180514
  Receipt Date: 20180809
  Transmission Date: 20181010
  Serious: Yes (Other)
  Sender: FDA-Public Use
  Company Number: US-ELI_LILLY_AND_COMPANY-US201805001499

PATIENT
  Age: 84 Year
  Sex: Female

DRUGS (3)
  1. HYDROCHLOROTHIAZIDE. [Concomitant]
     Active Substance: HYDROCHLOROTHIAZIDE
     Indication: FLUID RETENTION
     Dosage: UNK
  2. TERIPARATIDE [Suspect]
     Active Substance: TERIPARATIDE
     Indication: OSTEOPENIA
     Dosage: 20 UG, UNKNOWN
     Route: 058
     Dates: start: 20121012
  3. TERIPARATIDE [Suspect]
     Active Substance: TERIPARATIDE
     Indication: OSTEOPOROSIS
     Dosage: 20 UG, UNKNOWN
     Route: 058
     Dates: start: 2014, end: 201608

REACTIONS (21)
  - Blood chloride decreased [Not Recovered/Not Resolved]
  - Cerebral disorder [Unknown]
  - Red blood cell count decreased [Not Recovered/Not Resolved]
  - Renal failure [Not Recovered/Not Resolved]
  - Leukaemia [Unknown]
  - Blood glucose abnormal [Not Recovered/Not Resolved]
  - Oxygen saturation decreased [Unknown]
  - Gait disturbance [Not Recovered/Not Resolved]
  - Balance disorder [Not Recovered/Not Resolved]
  - Device failure [Not Recovered/Not Resolved]
  - Muscle tightness [Not Recovered/Not Resolved]
  - Fatigue [Unknown]
  - Dyspnoea [Unknown]
  - Vision blurred [Unknown]
  - Body temperature increased [Unknown]
  - Blood sodium decreased [Not Recovered/Not Resolved]
  - Insomnia [Unknown]
  - Emotional disorder [Not Recovered/Not Resolved]
  - Visual impairment [Unknown]
  - Plantar fasciitis [Not Recovered/Not Resolved]
  - Stress [Unknown]

NARRATIVE: CASE EVENT DATE: 20180622
